FAERS Safety Report 7682487-4 (Version None)
Quarter: 2011Q3

REPORT INFORMATION
  Report Type: 
  Country: None (occurrence: None)
  Receive Date: 20110815
  Receipt Date: 20110805
  Transmission Date: 20111222
  Serious: Yes (Other)
  Sender: FDA-Public Use
  Company Number: PHHY2008JP11801

PATIENT
  Sex: Male

DRUGS (12)
  1. SUMIFERON DS [Concomitant]
     Indication: RENAL CANCER
     Dosage: 300 DF, UNK
     Route: 058
     Dates: start: 20070608
  2. LORCAM [Concomitant]
     Indication: BONE PAIN
     Dosage: 12 MG, UNK
     Route: 048
  3. FAMOTIDINE [Concomitant]
     Indication: GASTRITIS
     Dosage: 20 MG, UNK
     Route: 048
  4. CAPTOPRIL [Concomitant]
     Indication: HYPERTENSION
     Dosage: 37.5 MG, UNK
     Route: 048
  5. MARZULENE S [Concomitant]
     Indication: GASTRITIS
     Dosage: 1.5 G, UNK
     Route: 048
  6. PURSENNID [Concomitant]
     Indication: CONSTIPATION
     Dosage: 24 MG, UNK
     Route: 048
  7. DOXAZOSIN MESYLATE [Concomitant]
     Indication: HYPERTENSION
     Dosage: 4 MG, UNK
     Route: 048
  8. CALCIUM CARBONATE [Concomitant]
     Indication: HYPOCALCAEMIA
     Dosage: 4500 MG, UNK
     Route: 048
  9. INTERFERON ALFA [Concomitant]
  10. MOBIC [Concomitant]
     Indication: BONE PAIN
     Route: 048
  11. ZOMETA [Suspect]
     Indication: METASTASES TO BONE
     Dosage: 4 MG, UNK
     Route: 042
     Dates: start: 20070608, end: 20080606
  12. ADALAT [Concomitant]
     Indication: HYPERTENSION
     Dosage: 60 MG, UNK
     Route: 048

REACTIONS (8)
  - BONE DISORDER [None]
  - PAIN IN JAW [None]
  - PURULENT DISCHARGE [None]
  - OSTEONECROSIS [None]
  - OSTEONECROSIS OF JAW [None]
  - HAEMATOCRIT DECREASED [None]
  - RED BLOOD CELL COUNT DECREASED [None]
  - HAEMOGLOBIN DECREASED [None]
